FAERS Safety Report 21585048 (Version 2)
Quarter: 2024Q1

REPORT INFORMATION
  Report Type: Report from Study
  Country: US (occurrence: US)
  Receive Date: 20221111
  Receipt Date: 20240111
  Transmission Date: 20240409
  Serious: Yes (Hospitalization, Other)
  Sender: FDA-Public Use
  Company Number: US-ABBVIE-4195989

PATIENT
  Sex: Female

DRUGS (1)
  1. HUMIRA [Suspect]
     Active Substance: ADALIMUMAB
     Indication: Psoriasis
     Dosage: FORM STRENGTH: 40 MILLIGRAM
     Route: 058
     Dates: start: 20230405

REACTIONS (6)
  - Psoriasis [Unknown]
  - Urinary tract infection [Unknown]
  - Systemic lupus erythematosus [Unknown]
  - COVID-19 [Recovering/Resolving]
  - Blood urine present [Unknown]
  - Pain [Unknown]
